FAERS Safety Report 9051522 (Version 2)
Quarter: 2013Q1

REPORT INFORMATION
  Report Type: Spontaneous
  Country: US (occurrence: US)
  Receive Date: 20130207
  Receipt Date: 20130308
  Transmission Date: 20140127
  Serious: Yes (Other)
  Sender: FDA-Public Use
  Company Number: US-AMGEN-USASP2013007951

PATIENT
  Age: 53 Year
  Sex: Female

DRUGS (11)
  1. PROCRIT [Suspect]
     Indication: PRODUCT USED FOR UNKNOWN INDICATION
     Dosage: UNK
  2. JAKAFI [Suspect]
     Indication: MYELOFIBROSIS
     Dosage: 5 MG, UNK
     Route: 048
     Dates: start: 20120608
  3. JAKAFI [Suspect]
     Dosage: 5 MG, QD
  4. JAKAFI [Suspect]
     Dosage: 5 MG, BID
  5. JAKAFI [Suspect]
     Dosage: 5 MG, QD
  6. JAKAFI [Suspect]
     Dosage: 5 MG QD ALTERNATING WITH 5 MG BID
  7. JAKAFI [Suspect]
     Dosage: 5 MG, QD
  8. MULTIVITAMINS [Concomitant]
     Dosage: UNK
  9. VITAMIN C                          /00008001/ [Concomitant]
     Dosage: UNK
  10. CALCIUM                            /00751528/ [Concomitant]
     Dosage: UNK
  11. ALLOPURINOL [Concomitant]
     Dosage: UNK

REACTIONS (3)
  - Platelet count decreased [Unknown]
  - Splenomegaly [Unknown]
  - Contusion [Unknown]
